FAERS Safety Report 18526049 (Version 4)
Quarter: 2021Q1

REPORT INFORMATION
  Report Type: Spontaneous
  Country: IE (occurrence: IE)
  Receive Date: 20201120
  Receipt Date: 20210201
  Transmission Date: 20210419
  Serious: Yes (Other)
  Sender: FDA-Public Use
  Company Number: IE-009507513-2011GBR007961

PATIENT
  Age: 58 Year
  Sex: Male

DRUGS (19)
  1. POSACONAZOLE [Suspect]
     Active Substance: POSACONAZOLE
     Indication: BRONCHOPULMONARY ASPERGILLOSIS
     Dosage: DELAYED RELEASE
     Route: 065
  2. MOXIFLOXACIN. [Concomitant]
     Active Substance: MOXIFLOXACIN
     Indication: ATYPICAL MYCOBACTERIAL LOWER RESPIRATORY TRACT INFECTION
  3. AZITHROMYCIN ANHYDROUS. [Concomitant]
     Active Substance: AZITHROMYCIN ANHYDROUS
     Indication: ATYPICAL MYCOBACTERIAL LOWER RESPIRATORY TRACT INFECTION
  4. ETHAMBUTOL [Concomitant]
     Active Substance: ETHAMBUTOL HYDROCHLORIDE
     Indication: MYCOBACTERIAL INFECTION
     Route: 065
  5. ETHAMBUTOL [Concomitant]
     Active Substance: ETHAMBUTOL HYDROCHLORIDE
     Indication: ATYPICAL MYCOBACTERIAL LOWER RESPIRATORY TRACT INFECTION
  6. VORICONAZOLE. [Concomitant]
     Active Substance: VORICONAZOLE
     Indication: MYCOBACTERIAL INFECTION
  7. DOXYCYCLINE. [Concomitant]
     Active Substance: DOXYCYCLINE
     Indication: ATYPICAL MYCOBACTERIAL LOWER RESPIRATORY TRACT INFECTION
  8. RIFABUTIN. [Interacting]
     Active Substance: RIFABUTIN
     Indication: MYCOBACTERIAL INFECTION
  9. VORICONAZOLE. [Concomitant]
     Active Substance: VORICONAZOLE
     Indication: BRONCHOPULMONARY ASPERGILLOSIS
     Dosage: UNK
  10. DOXYCYCLINE. [Concomitant]
     Active Substance: DOXYCYCLINE
     Indication: BRONCHOPULMONARY ASPERGILLOSIS
     Route: 065
  11. DOXYCYCLINE. [Concomitant]
     Active Substance: DOXYCYCLINE
     Indication: MYCOBACTERIAL INFECTION
  12. AZITHROMYCIN ANHYDROUS. [Concomitant]
     Active Substance: AZITHROMYCIN ANHYDROUS
     Indication: BRONCHOPULMONARY ASPERGILLOSIS
     Route: 065
  13. MOXIFLOXACIN. [Concomitant]
     Active Substance: MOXIFLOXACIN
     Indication: BRONCHOPULMONARY ASPERGILLOSIS
     Route: 065
  14. POSACONAZOLE [Interacting]
     Active Substance: POSACONAZOLE
     Dosage: 300 MG BD
     Route: 048
  15. RIFABUTIN. [Interacting]
     Active Substance: RIFABUTIN
     Indication: BRONCHOPULMONARY ASPERGILLOSIS
     Dosage: 300 MG TWICE DAILY (BD)
  16. ETHAMBUTOL [Concomitant]
     Active Substance: ETHAMBUTOL HYDROCHLORIDE
     Indication: BRONCHOPULMONARY ASPERGILLOSIS
     Dosage: UNK
  17. POSACONAZOLE [Interacting]
     Active Substance: POSACONAZOLE
     Indication: MYCOBACTERIAL INFECTION
     Dosage: DELAYED RELEASE
     Route: 065
  18. AZITHROMYCIN ANHYDROUS. [Concomitant]
     Active Substance: AZITHROMYCIN ANHYDROUS
     Indication: MYCOBACTERIAL INFECTION
  19. MOXIFLOXACIN. [Concomitant]
     Active Substance: MOXIFLOXACIN
     Indication: MYCOBACTERIAL INFECTION

REACTIONS (2)
  - Iridocyclitis [Unknown]
  - Drug interaction [Unknown]
